FAERS Safety Report 4717117-4 (Version None)
Quarter: 2005Q3

REPORT INFORMATION
  Report Type: 
  Country: None (occurrence: None)
  Receive Date: 20050715
  Receipt Date: 20050705
  Transmission Date: 20060218
  Serious: Yes (Other)
  Sender: FDA-Public Use
  Company Number: HQWYE975306JUL05

PATIENT
  Age: 56 Year
  Sex: Female

DRUGS (4)
  1. CORDARONE [Suspect]
     Indication: VENTRICULAR EXTRASYSTOLES
     Dosage: 200 MG 1X PER 1 DAY, ORAL
     Route: 048
     Dates: start: 20050401, end: 20050601
  2. IRBESARTAN [Concomitant]
  3. LIPANTHYL - SLOW RELEASE (FENOFIBRATE) [Concomitant]
  4. GLUCOPHAGE [Concomitant]

REACTIONS (5)
  - BLINDNESS UNILATERAL [None]
  - CONJUNCTIVITIS [None]
  - EYE OEDEMA [None]
  - PHOTOSENSITIVITY REACTION [None]
  - PNEUMONITIS [None]
